FAERS Safety Report 9209735 (Version 1)
Quarter: 2013Q2

REPORT INFORMATION
  Report Type: Spontaneous
  Country: AU (occurrence: AU)
  Receive Date: 20130404
  Receipt Date: 20130404
  Transmission Date: 20140414
  Serious: Yes (Hospitalization, Other)
  Sender: FDA-Public Use
  Company Number: AU-ROXANE LABORATORIES, INC.-2013-RO-00436RO

PATIENT
  Age: 45 Year
  Sex: Female

DRUGS (8)
  1. LITHIUM CARBONATE [Suspect]
     Dosage: 650 MG
  2. QUETIAPINE FUMARATE [Suspect]
     Dosage: 200 MG
  3. DIAZEPAM [Suspect]
     Dosage: 7.5 MG
  4. MORPHINE [Suspect]
     Dosage: 600 MG
  5. VENLAFAXINE [Suspect]
     Dosage: 300 MG
  6. SODIUM VALPROATE [Suspect]
     Dosage: 2.5 G
  7. THYROXINE [Suspect]
     Dosage: 50 MCG
  8. ROSUVASTATIN [Suspect]
     Dosage: 10 MCG

REACTIONS (2)
  - Oedema [Recovered/Resolved]
  - Depression [Unknown]
